FAERS Safety Report 24655652 (Version 1)
Quarter: 2024Q4

REPORT INFORMATION
  Report Type: Spontaneous
  Country: AU (occurrence: AU)
  Receive Date: 20241123
  Receipt Date: 20241123
  Transmission Date: 20250114
  Serious: Yes (Other)
  Sender: HILL DERMACEUTICALS, INC.
  Company Number: AU-Hill Dermaceuticals, Inc.-2165709

PATIENT
  Sex: Female

DRUGS (20)
  1. FLUOROURACIL [Suspect]
     Active Substance: FLUOROURACIL
     Indication: Product used for unknown indication
  2. HALAVEN [Suspect]
     Active Substance: ERIBULIN MESYLATE
  3. VORINOSTAT [Suspect]
     Active Substance: VORINOSTAT
  4. VEMURAFENIB [Suspect]
     Active Substance: VEMURAFENIB
  5. SUNITINIB [Suspect]
     Active Substance: SUNITINIB
  6. ROMIDEPSIN [Suspect]
     Active Substance: ROMIDEPSIN
  7. RITUXIMAB [Suspect]
     Active Substance: RITUXIMAB
  8. PALBOCICLIB [Suspect]
     Active Substance: PALBOCICLIB
  9. OXALIPLATIN [Suspect]
     Active Substance: OXALIPLATIN
  10. LAPATINIB [Suspect]
     Active Substance: LAPATINIB
  11. EPIRUBICIN HYDROCHLORIDE [Suspect]
     Active Substance: EPIRUBICIN HYDROCHLORIDE
  12. DOXORUBICIN HYDROCHLORIDE [Suspect]
     Active Substance: DOXORUBICIN HYDROCHLORIDE
  13. DABRAFENIB MESYLATE [Suspect]
     Active Substance: DABRAFENIB MESYLATE
  14. CYCLOPHOSPHAMIDE [Suspect]
     Active Substance: CYCLOPHOSPHAMIDE
  15. CISPLATIN [Suspect]
     Active Substance: CISPLATIN
  16. CARBOPLATIN [Suspect]
     Active Substance: CARBOPLATIN
  17. CAPECITABINE [Suspect]
     Active Substance: CAPECITABINE
  18. BORTEZOMIB [Suspect]
     Active Substance: BORTEZOMIB
  19. ARSENIC TRIOXIDE [Suspect]
     Active Substance: ARSENIC TRIOXIDE
  20. KISQALI [Suspect]
     Active Substance: RIBOCICLIB

REACTIONS (1)
  - Electrocardiogram QT prolonged [Unknown]
